FAERS Safety Report 6127844-2 (Version None)
Quarter: 2009Q1

REPORT INFORMATION
  Report Type: 
  Country: None (occurrence: None)
  Receive Date: 20090320
  Receipt Date: 20090320
  Transmission Date: 20090719
  Serious: Yes (Disabling)
  Sender: FDA-Public Use
  Company Number: None

PATIENT
  Sex: Female
  Weight: 72.5755 kg

DRUGS (2)
  1. LEVAQUIN [Suspect]
     Indication: TOOTH ABSCESS
     Dosage: 500 MG MCN ONCE DAILY
     Dates: start: 20090202
  2. LEVOFLOXACIN [Suspect]
     Dates: start: 20090207

REACTIONS (3)
  - INSOMNIA [None]
  - MUSCULOSKELETAL PAIN [None]
  - PAIN IN EXTREMITY [None]
